FAERS Safety Report 8058763-2 (Version None)
Quarter: 2012Q1

REPORT INFORMATION
  Report Type: 
  Country: None (occurrence: None)
  Receive Date: 20120119
  Receipt Date: 20120119
  Transmission Date: 20120608
  Serious: Yes (Other)
  Sender: FDA-Public Use
  Company Number: None

PATIENT
  Sex: Female
  Weight: 77.1115 kg

DRUGS (1)
  1. FLUOXETINE HYDROCHLORIDE [Suspect]
     Indication: DEPRESSION
     Dosage: 20 MG ONCE DAILY
     Dates: start: 20111101

REACTIONS (3)
  - PRODUCT SUBSTITUTION ISSUE [None]
  - FEELING ABNORMAL [None]
  - DYSGEUSIA [None]
